FAERS Safety Report 6678845-7 (Version None)
Quarter: 2010Q2

REPORT INFORMATION
  Report Type: 
  Country: None (occurrence: None)
  Receive Date: 20100412
  Receipt Date: 20100412
  Transmission Date: 20101027
  Serious: Yes (Hospitalization)
  Sender: FDA-Public Use
  Company Number: None

PATIENT
  Age: 51 Year
  Sex: Female
  Weight: 65 kg

DRUGS (3)
  1. ERLOTINIB [Suspect]
     Indication: PARANASAL SINUS AND NASAL CAVITY MALIGNANT NEOPLASM
     Dosage: 300 MG DAY 2 PO ; 150 MG DAY 3-17 PO
     Route: 048
     Dates: start: 20091126, end: 20100404
  2. CISPLATIN [Suspect]
     Dosage: 75 MG/M2 DAY 1 IV
     Route: 042
     Dates: start: 20091126, end: 20100319
  3. PACLITAXEL [Suspect]
     Dosage: 175 MG/M2 DAY 1 IV
     Route: 042
     Dates: start: 20091126, end: 20100319

REACTIONS (4)
  - CELLULITIS [None]
  - HEAD AND NECK CANCER [None]
  - INFECTION [None]
  - MALIGNANT NEOPLASM PROGRESSION [None]
